FAERS Safety Report 5056949-2 (Version None)
Quarter: 2006Q3

REPORT INFORMATION
  Report Type: 
  Country: None (occurrence: None)
  Receive Date: 20060721
  Receipt Date: 20030619
  Transmission Date: 20061208
  Serious: Yes (Other)
  Sender: FDA-Public Use
  Company Number: PHEH2003US12110

PATIENT
  Sex: Female

DRUGS (1)
  1. FORADIL [Suspect]
     Dates: start: 20050601

REACTIONS (2)
  - DEVICE MALFUNCTION [None]
  - THROMBOSIS [None]
